FAERS Safety Report 6346694-5 (Version None)
Quarter: 2009Q3

REPORT INFORMATION
  Report Type: 
  Country: None (occurrence: None)
  Receive Date: 20090904
  Receipt Date: 20090827
  Transmission Date: 20100115
  Serious: Yes (Hospitalization, Other)
  Sender: FDA-Public Use
  Company Number: 86319

PATIENT
  Age: 64 Year
  Sex: Female

DRUGS (1)
  1. VALPROATE SODIUM [Suspect]
     Dosage: 300MG/DAY;1500MG/DAY

REACTIONS (3)
  - ATELECTASIS [None]
  - PERICARDIAL EFFUSION [None]
  - PLEURAL EFFUSION [None]
